FAERS Safety Report 5310973-0 (Version None)
Quarter: 2007Q2

REPORT INFORMATION
  Report Type: 
  Country: None (occurrence: None)
  Receive Date: 20070423
  Receipt Date: 20070411
  Transmission Date: 20071010
  Serious: Yes (Hospitalization)
  Sender: FDA-Public Use
  Company Number: 155261ISR

PATIENT
  Age: 54 Year
  Sex: Male

DRUGS (2)
  1. LEVOTHYROXINE SODIUM [Suspect]
  2. SIMVASTATIN [Suspect]

REACTIONS (2)
  - COMPARTMENT SYNDROME [None]
  - MUSCLE NECROSIS [None]
